FAERS Safety Report 5873754-5 (Version None)
Quarter: 2008Q3

REPORT INFORMATION
  Report Type: 
  Country: None (occurrence: None)
  Receive Date: 20080908
  Receipt Date: 20080827
  Transmission Date: 20090109
  Serious: Yes (Death, Hospitalization)
  Sender: FDA-Public Use
  Company Number: HU-ROCHE-571111

PATIENT
  Sex: Female
  Weight: 51 kg

DRUGS (6)
  1. CAPECITABINE [Suspect]
     Dosage: PERMANENTLY DISCONTINUED ON 26 MAY 2008 FREQUENCY: 14 CALENDAR DAYS
     Route: 048
     Dates: start: 20080118, end: 20080526
  2. CORINFAR RETARD [Concomitant]
     Dates: start: 19790101, end: 20080712
  3. VITAMINE D [Concomitant]
     Dosage: DOSE REPORTED AS 1000 NB
     Dates: start: 20040101, end: 20080712
  4. VEROSPIRON [Concomitant]
     Dates: start: 20071220, end: 20080712
  5. ZANTAC [Concomitant]
     Dates: start: 20071122, end: 20080712
  6. CARDILOPIN [Concomitant]
     Dates: start: 20071220, end: 20080712

REACTIONS (2)
  - ASCITES [None]
  - DEATH [None]
